FAERS Safety Report 4471373-9 (Version None)
Quarter: 2004Q4

REPORT INFORMATION
  Report Type: 
  Country: None (occurrence: None)
  Receive Date: 20041006
  Receipt Date: 20040922
  Transmission Date: 20050328
  Serious: Yes (Hospitalization)
  Sender: FDA-Public Use
  Company Number: K200401469

PATIENT
  Age: 61 Year
  Sex: Female

DRUGS (1)
  1. KETALAR [Suspect]
     Indication: COLONOSCOPY

REACTIONS (2)
  - DIZZINESS [None]
  - NAUSEA [None]
